FAERS Safety Report 14897638 (Version 1)
Quarter: 2018Q2

REPORT INFORMATION
  Report Type: Report from Study
  Country: BR (occurrence: BR)
  Receive Date: 20180515
  Receipt Date: 20180515
  Transmission Date: 20180711
  Serious: Yes (Other)
  Sender: FDA-Public Use
  Company Number: BR-SHIRE-BR201818591

PATIENT

DRUGS (3)
  1. SALBUTAMOL [Concomitant]
     Active Substance: ALBUTEROL
     Indication: RESPIRATORY DISORDER
  2. AEROLIN [Concomitant]
     Active Substance: ALBUTEROL
     Indication: RESPIRATORY DISORDER
  3. ELAPRASE [Suspect]
     Active Substance: IDURSULFASE
     Indication: MUCOPOLYSACCHARIDOSIS II
     Dosage: 2 VIALS
     Route: 065
     Dates: start: 201610, end: 201707

REACTIONS (6)
  - Inappropriate schedule of drug administration [Unknown]
  - Apnoea [Unknown]
  - Pneumonia [Unknown]
  - Respiratory distress [Unknown]
  - Off label use [Unknown]
  - Snoring [Unknown]
